FAERS Safety Report 8201536-8 (Version None)
Quarter: 2012Q1

REPORT INFORMATION
  Report Type: 
  Country: None (occurrence: None)
  Receive Date: 20120312
  Receipt Date: 20120223
  Transmission Date: 20120608
  Serious: Yes (Hospitalization)
  Sender: FDA-Public Use
  Company Number: FR-GLAXOSMITHKLINE-B0783820A

PATIENT
  Sex: Male

DRUGS (10)
  1. SCOPOLAMINE [Concomitant]
     Route: 062
     Dates: end: 20120119
  2. LASIX [Concomitant]
     Dosage: 60MG PER DAY
     Route: 048
     Dates: end: 20120119
  3. ARIXTRA [Suspect]
     Indication: PRODUCT USED FOR UNKNOWN INDICATION
     Dosage: 2.5MG PER DAY
     Route: 058
     Dates: end: 20120119
  4. NEXIUM [Concomitant]
     Dosage: 1TAB TWICE PER DAY
     Route: 048
     Dates: end: 20120119
  5. DURAGESIC-100 [Concomitant]
     Route: 062
     Dates: end: 20120129
  6. OMEPRAZOLE [Concomitant]
     Dosage: 4UNIT PER DAY
     Route: 048
     Dates: end: 20120119
  7. IMOVANE [Concomitant]
     Dosage: 1TAB PER DAY
     Route: 048
     Dates: end: 20120119
  8. LEXOMIL [Concomitant]
     Dosage: 3MG THREE TIMES PER DAY
     Route: 048
     Dates: end: 20120109
  9. OXYCODONE HCL [Concomitant]
     Route: 048
     Dates: end: 20120126
  10. ACETAMINOPHEN [Concomitant]
     Dosage: 1G THREE TIMES PER DAY
     Route: 048
     Dates: end: 20120129

REACTIONS (2)
  - POST PROCEDURAL HAEMORRHAGE [None]
  - EPISTAXIS [None]
